FAERS Safety Report 9965264 (Version 1)
Quarter: 2014Q1

REPORT INFORMATION
  Report Type: Report from Study
  Country: US (occurrence: US)
  Receive Date: 20140305
  Receipt Date: 20140305
  Transmission Date: 20141002
  Serious: No
  Sender: FDA-Public Use
  Company Number: US-ABBVIE-13P-163-1124156-00

PATIENT
  Sex: Male
  Weight: 90.8 kg

DRUGS (5)
  1. HUMIRA [Suspect]
     Indication: PSORIASIS
     Dates: start: 201207, end: 201207
  2. HUMIRA [Suspect]
     Dates: start: 201207, end: 201207
  3. HUMIRA [Suspect]
     Dates: start: 2012, end: 201301
  4. HUMIRA [Suspect]
     Dates: start: 201307, end: 201307
  5. HUMIRA [Suspect]

REACTIONS (2)
  - Drug ineffective [Not Recovered/Not Resolved]
  - Psoriasis [Not Recovered/Not Resolved]
